FAERS Safety Report 4983227-X (Version None)
Quarter: 2006Q2

REPORT INFORMATION
  Report Type: 
  Country: None (occurrence: None)
  Receive Date: 20060419
  Receipt Date: 20060407
  Transmission Date: 20061013
  Serious: Yes (Life-Threatening, Hospitalization)
  Sender: FDA-Public Use
  Company Number: MY-2006-007992

PATIENT
  Age: 69 Year
  Sex: Female

DRUGS (2)
  1. ULTRAVIST (PHARMACY BULK) [Suspect]
     Indication: COMPUTERISED TOMOGRAM ABDOMEN
     Dosage: IV BOLUS
     Route: 040
     Dates: start: 20060322, end: 20060322
  2. ULTRAVIST (PHARMACY BULK) [Suspect]
     Indication: COMPUTERISED TOMOGRAM THORAX
     Dosage: IV BOLUS
     Route: 040
     Dates: start: 20060322, end: 20060322

REACTIONS (7)
  - CYANOSIS [None]
  - DYSPNOEA [None]
  - FOAMING AT MOUTH [None]
  - HYPOTENSION [None]
  - LOSS OF CONSCIOUSNESS [None]
  - RESUSCITATION [None]
  - UNRESPONSIVE TO VERBAL STIMULI [None]
